FAERS Safety Report 17507753 (Version 1)
Quarter: 2020Q1

REPORT INFORMATION
  Report Type: Report from Study
  Country: None (occurrence: US)
  Receive Date: 20200306
  Receipt Date: 20200306
  Transmission Date: 20200409
  Serious: Yes (Death, Other)
  Sender: FDA-Public Use
  Company Number: US-ABBVIE-20K-163-3259875-00

PATIENT
  Age: 69 Year
  Sex: Male
  Weight: 47.67 kg

DRUGS (8)
  1. HUMIRA [Suspect]
     Active Substance: ADALIMUMAB
     Indication: CROHN^S DISEASE
     Dosage: 6 CITRATE FREE HUMIRA PEN
     Route: 058
     Dates: start: 2011
  2. IRON [Concomitant]
     Active Substance: IRON
     Indication: MINERAL SUPPLEMENTATION
  3. FIBER [Concomitant]
     Active Substance: PSYLLIUM HUSK
     Indication: SUPPLEMENTATION THERAPY
  4. URSODIOL. [Concomitant]
     Active Substance: URSODIOL
     Indication: PRIMARY BILIARY CHOLANGITIS
  5. VITAMIN B12 [Concomitant]
     Active Substance: CYANOCOBALAMIN
     Indication: VITAMIN SUPPLEMENTATION
  6. VITAMIN D [Concomitant]
     Active Substance: VITAMIN D NOS
     Indication: VITAMIN SUPPLEMENTATION
  7. URSODIOL. [Concomitant]
     Active Substance: URSODIOL
     Indication: CROHN^S DISEASE
  8. VITAMIN C [Concomitant]
     Active Substance: ASCORBIC ACID
     Indication: VITAMIN SUPPLEMENTATION

REACTIONS (11)
  - Dehydration [Not Recovered/Not Resolved]
  - Hypophagia [Unknown]
  - Localised oedema [Unknown]
  - Decreased appetite [Not Recovered/Not Resolved]
  - Biliary tract disorder [Unknown]
  - Ammonia increased [Recovered/Resolved]
  - Hepatic failure [Fatal]
  - Dyspnoea [Unknown]
  - Fatigue [Not Recovered/Not Resolved]
  - Gallbladder disorder [Unknown]
  - Abdominal distension [Unknown]

NARRATIVE: CASE EVENT DATE: 20190918
